FAERS Safety Report 7944257-9 (Version None)
Quarter: 2011Q4

REPORT INFORMATION
  Report Type: 
  Country: None (occurrence: None)
  Receive Date: 20111129
  Receipt Date: 20111121
  Transmission Date: 20120403
  Serious: No
  Sender: FDA-Public Use
  Company Number: US-BIOGENIDEC-2011BI035500

PATIENT
  Sex: Female

DRUGS (3)
  1. AVONEX [Concomitant]
     Indication: MULTIPLE SCLEROSIS
     Route: 030
     Dates: start: 20040828
  2. NORFLOXACIN [Concomitant]
     Indication: PRODUCT USED FOR UNKNOWN INDICATION
  3. TYSABRI [Suspect]
     Indication: MULTIPLE SCLEROSIS
     Route: 042
     Dates: start: 20110407, end: 20110728

REACTIONS (15)
  - CONFUSIONAL STATE [None]
  - TEMPERATURE INTOLERANCE [None]
  - BRADYPHRENIA [None]
  - MUSCLE SPASMS [None]
  - HEARING IMPAIRED [None]
  - HERPES ZOSTER [None]
  - DYSGRAPHIA [None]
  - DECREASED IMMUNE RESPONSIVENESS [None]
  - COORDINATION ABNORMAL [None]
  - HEADACHE [None]
  - DYSARTHRIA [None]
  - MOBILITY DECREASED [None]
  - SINUS HEADACHE [None]
  - SKIN DISORDER [None]
  - POSTURE ABNORMAL [None]
